FAERS Safety Report 8531079-3 (Version None)
Quarter: 2012Q3

REPORT INFORMATION
  Report Type: 
  Country: None (occurrence: None)
  Receive Date: 20120711
  Receipt Date: 20120625
  Transmission Date: 20120928
  Serious: Yes (Life-Threatening, Hospitalization)
  Sender: FDA-Public Use
  Company Number: TCI2012A03361

PATIENT
  Age: 73 Year
  Sex: Male

DRUGS (4)
  1. SULFONAMIDES, UREA DERIVATIVES [Concomitant]
  2. ANGIOTENSIN II ANTAGONISTS [Concomitant]
  3. ORAL ANTIDIABETICS [Concomitant]
  4. ACTOS [Suspect]
     Indication: TYPE 2 DIABETES MELLITUS
     Dosage: 15 MG (15 MG, 1 D) PER ORAL
     Route: 048
     Dates: start: 20080623, end: 20100419

REACTIONS (3)
  - MALAISE [None]
  - DYSPNOEA [None]
  - ACUTE MYOCARDIAL INFARCTION [None]
